FAERS Safety Report 24579682 (Version 1)
Quarter: 2024Q4

REPORT INFORMATION
  Report Type: Spontaneous
  Country: PL (occurrence: PL)
  Receive Date: 20241105
  Receipt Date: 20241105
  Transmission Date: 20250114
  Serious: Yes (Hospitalization, Other)
  Sender: SANDOZ
  Company Number: PL-PFIZER INC-PV202400136902

PATIENT
  Age: 46 Year
  Sex: Female

DRUGS (2)
  1. MYCOPHENOLATE MOFETIL [Suspect]
     Active Substance: MYCOPHENOLATE MOFETIL
     Indication: Malignant melanoma
     Dosage: UNK
     Route: 065
  2. METHYLPREDNISOLONE SODIUM SUCCINATE [Suspect]
     Active Substance: METHYLPREDNISOLONE SODIUM SUCCINATE
     Indication: Malignant melanoma
     Dosage: UNK
     Route: 042

REACTIONS (3)
  - Substance-induced psychotic disorder [Unknown]
  - Steroid diabetes [Unknown]
  - Off label use [Unknown]
